FAERS Safety Report 7951899-3 (Version None)
Quarter: 2011Q4

REPORT INFORMATION
  Report Type: 
  Country: None (occurrence: None)
  Receive Date: 20111201
  Receipt Date: 20111201
  Transmission Date: 20120403
  Serious: Yes (Other)
  Sender: FDA-Public Use
  Company Number: None

PATIENT
  Age: 22 Year
  Sex: Male
  Weight: 83.914 kg

DRUGS (1)
  1. AMPHETAMINE AND DEXTROAMPHETAMINE SALTS [Suspect]
     Indication: ATTENTION DEFICIT/HYPERACTIVITY DISORDER
     Dosage: 15MG
     Route: 048
     Dates: start: 20111121, end: 20111130

REACTIONS (8)
  - HALLUCINATION, AUDITORY [None]
  - TACHYCARDIA [None]
  - PALPITATIONS [None]
  - DISTURBANCE IN ATTENTION [None]
  - BRUXISM [None]
  - INSOMNIA [None]
  - DYSPNOEA [None]
  - HYPERHIDROSIS [None]
